FAERS Safety Report 8588097-9 (Version None)
Quarter: 2012Q3

REPORT INFORMATION
  Report Type: 
  Country: None (occurrence: None)
  Receive Date: 20120813
  Receipt Date: 20120807
  Transmission Date: 20120928
  Serious: No
  Sender: FDA-Public Use
  Company Number: US-PFIZER INC-2012193221

PATIENT
  Age: 42 Year
  Sex: Female
  Weight: 61.224 kg

DRUGS (3)
  1. ATIVAN [Concomitant]
     Indication: ANXIETY
     Dosage: 1 MG THREE TIMES A DAY AS NEEDED
  2. PRISTIQ [Suspect]
     Indication: ANXIETY
  3. PRISTIQ [Suspect]
     Indication: DEPRESSION
     Dosage: UNK
     Dates: start: 20070101, end: 20110101

REACTIONS (3)
  - INFLUENZA LIKE ILLNESS [None]
  - FEELING ABNORMAL [None]
  - VISUAL IMPAIRMENT [None]
